FAERS Safety Report 16776481 (Version 4)
Quarter: 2019Q3

REPORT INFORMATION
  Report Type: Spontaneous
  Country: US (occurrence: US)
  Receive Date: 20190905
  Receipt Date: 20190919
  Transmission Date: 20191005
  Serious: Yes (Hospitalization, Other)
  Sender: FDA-Public Use
  Company Number: US-PFIZER INC-2019377339

PATIENT
  Age: 80 Year
  Sex: Female

DRUGS (1)
  1. AMIODARONE HCL [Suspect]
     Active Substance: AMIODARONE HYDROCHLORIDE
     Indication: ATRIAL FIBRILLATION
     Dosage: 200 MG, (FOR 14 MONTHS)

REACTIONS (10)
  - Computerised tomogram thorax abnormal [Recovering/Resolving]
  - Chest X-ray abnormal [Recovering/Resolving]
  - Dyspnoea [Recovering/Resolving]
  - Hypoxia [Recovering/Resolving]
  - Hepatic function abnormal [Recovering/Resolving]
  - Cough [Recovering/Resolving]
  - Toxicity to various agents [Recovering/Resolving]
  - Pulmonary toxicity [Recovering/Resolving]
  - Gait disturbance [Recovering/Resolving]
  - Rales [Recovering/Resolving]
